FAERS Safety Report 13944884 (Version 1)
Quarter: 2017Q3

REPORT INFORMATION
  Report Type: Spontaneous
  Country: US (occurrence: US)
  Receive Date: 20170907
  Receipt Date: 20170907
  Transmission Date: 20171128
  Serious: No
  Sender: FDA-Public Use
  Company Number: US-B.I. PHARMACEUTICALS,INC./RIDGEFIELD-2017-BI-048660

PATIENT
  Age: 35 Year
  Sex: Female

DRUGS (3)
  1. SIFROL [Suspect]
     Active Substance: PRAMIPEXOLE
     Dosage: DOSE: 0.5MG
     Route: 065
  2. SIFROL [Suspect]
     Active Substance: PRAMIPEXOLE
     Indication: RESTLESS LEGS SYNDROME
     Dosage: DOSE: 1MG
     Route: 065
  3. SIFROL [Suspect]
     Active Substance: PRAMIPEXOLE
     Dosage: DOSE: 0.125MG
     Route: 065

REACTIONS (2)
  - Restless legs syndrome [Unknown]
  - Limb discomfort [Unknown]
